FAERS Safety Report 16886786 (Version 3)
Quarter: 2021Q4

REPORT INFORMATION
  Report Type: Spontaneous
  Country: US (occurrence: None)
  Receive Date: 20191004
  Receipt Date: 20211207
  Transmission Date: 20220303
  Serious: Yes (Death, Other)
  Sender: FDA-Public Use
  Company Number: 2019SE33496

PATIENT
  Age: 22868 Day
  Sex: Male

DRUGS (22)
  1. NEXIUM [Suspect]
     Active Substance: ESOMEPRAZOLE MAGNESIUM
     Indication: Gastrooesophageal reflux disease
     Route: 048
     Dates: start: 198901, end: 200902
  2. NEXIUM 24HR [Suspect]
     Active Substance: ESOMEPRAZOLE MAGNESIUM
     Route: 048
  3. PRILOSEC [Suspect]
     Active Substance: OMEPRAZOLE MAGNESIUM
     Indication: Gastrooesophageal reflux disease
     Route: 048
     Dates: start: 198901, end: 200902
  4. PRILOSEC OTC [Suspect]
     Active Substance: OMEPRAZOLE MAGNESIUM
     Route: 048
  5. PREVACID [Suspect]
     Active Substance: LANSOPRAZOLE
     Indication: Gastrooesophageal reflux disease
     Route: 065
     Dates: start: 198901, end: 200902
  6. PREVACID 24 HR [Suspect]
     Active Substance: LANSOPRAZOLE
     Route: 065
  7. PROTONIX [Suspect]
     Active Substance: PANTOPRAZOLE SODIUM
     Route: 065
  8. PROCRIT [Concomitant]
     Active Substance: ERYTHROPOIETIN
  9. COZAAR [Concomitant]
     Active Substance: LOSARTAN POTASSIUM
  10. NORVASC [Concomitant]
     Active Substance: AMLODIPINE BESYLATE
  11. AMARYL [Concomitant]
     Active Substance: GLIMEPIRIDE
  12. PHOSLO [Concomitant]
     Active Substance: CALCIUM ACETATE
  13. METOPROLOL [Concomitant]
     Active Substance: METOPROLOL
  14. IMDUR [Concomitant]
     Active Substance: ISOSORBIDE MONONITRATE
  15. INSULIN NOS [Concomitant]
     Active Substance: INSULIN NOS
  16. LEVAQUIN [Concomitant]
     Active Substance: LEVOFLOXACIN
  17. HAPARIN [Concomitant]
  18. LIDOCAINE [Concomitant]
     Active Substance: LIDOCAINE
  19. ADVAIR HFA [Concomitant]
     Active Substance: FLUTICASONE PROPIONATE\SALMETEROL XINAFOATE
  20. SINGULAIR [Concomitant]
     Active Substance: MONTELUKAST SODIUM
  21. ZYRTEC [Concomitant]
     Active Substance: CETIRIZINE HYDROCHLORIDE
  22. HUMULIN NOS [Concomitant]
     Active Substance: INSULIN HUMAN

REACTIONS (12)
  - Pulmonary oedema [Fatal]
  - Cardiac failure [Fatal]
  - End stage renal disease [Fatal]
  - Diabetes mellitus [Fatal]
  - Hypertension [Fatal]
  - Pneumonia [Fatal]
  - Staphylococcal infection [Fatal]
  - Peripheral vascular disorder [Fatal]
  - Chronic obstructive pulmonary disease [Fatal]
  - Arteriosclerosis [Fatal]
  - Acute kidney injury [Not Recovered/Not Resolved]
  - Chronic kidney disease [Not Recovered/Not Resolved]

NARRATIVE: CASE EVENT DATE: 20030401
